FAERS Safety Report 6165433-4 (Version None)
Quarter: 2009Q2

REPORT INFORMATION
  Report Type: 
  Country: None (occurrence: None)
  Receive Date: 20090423
  Receipt Date: 20090416
  Transmission Date: 20091009
  Serious: Yes (Hospitalization)
  Sender: FDA-Public Use
  Company Number: JP-MERCK-0903USA04147

PATIENT
  Age: 12 Year
  Sex: Female
  Weight: 32 kg

DRUGS (19)
  1. PEPCID [Suspect]
     Indication: ABDOMINAL PAIN UPPER
     Route: 048
     Dates: start: 20070702, end: 20070703
  2. PEPCID [Suspect]
     Route: 048
     Dates: start: 20070705, end: 20070708
  3. PEPCID INJECTION [Suspect]
     Indication: GASTRIC ULCER
     Route: 042
     Dates: start: 20070702, end: 20070702
  4. PEPCID INJECTION [Suspect]
     Route: 042
     Dates: start: 20070703, end: 20070704
  5. MINOCYCLINE HCL [Suspect]
     Indication: INFECTION
     Route: 048
     Dates: start: 20070702, end: 20070704
  6. MINOCYCLINE HCL [Suspect]
     Route: 048
     Dates: start: 20070705, end: 20070705
  7. CLARITH [Suspect]
     Indication: INFECTION
     Route: 048
     Dates: start: 20070705, end: 20070708
  8. GRAN [Suspect]
     Indication: PANCYTOPENIA
     Route: 042
     Dates: start: 20070705, end: 20070705
  9. MIYA BM [Concomitant]
     Route: 065
     Dates: start: 20070702, end: 20070703
  10. MIYA BM [Concomitant]
     Route: 065
     Dates: start: 20070705, end: 20070708
  11. MUCODYNE [Concomitant]
     Route: 065
     Dates: start: 20070703, end: 20070707
  12. NEUZYM [Concomitant]
     Route: 065
     Dates: start: 20070703, end: 20070707
  13. PREDONINE [Concomitant]
     Route: 065
     Dates: start: 20070705
  14. CALONAL [Concomitant]
     Route: 065
     Dates: start: 20070702, end: 20070702
  15. ROCEPHIN [Concomitant]
     Route: 065
     Dates: start: 20070702, end: 20070704
  16. DECADRON [Concomitant]
     Route: 065
     Dates: start: 20070704, end: 20070704
  17. SOLDEM 3A [Concomitant]
     Route: 065
     Dates: start: 20070703, end: 20070703
  18. ANHIBA [Concomitant]
     Route: 065
     Dates: start: 20070702, end: 20070702
  19. ACETAMINOPHEN AND ACETIAMINE AND APRONALIDE AND CAFFEINE AND ETHENZAMI [Concomitant]
     Route: 048
     Dates: start: 20070628

REACTIONS (1)
  - ERYTHEMA MULTIFORME [None]
